FAERS Safety Report 7267435-3 (Version None)
Quarter: 2011Q1

REPORT INFORMATION
  Report Type: 
  Country: None (occurrence: None)
  Receive Date: 20110201
  Receipt Date: 20110124
  Transmission Date: 20110831
  Serious: Yes (Death, Life-Threatening)
  Sender: FDA-Public Use
  Company Number: DE-JNJFOC-20100705213

PATIENT
  Age: 5 Decade
  Sex: Male

DRUGS (2)
  1. ABCIXIMAB [Suspect]
     Route: 042
  2. ABCIXIMAB [Suspect]
     Indication: MYOCARDIAL INFARCTION
     Route: 042

REACTIONS (1)
  - BACTERIAL SEPSIS [None]
